FAERS Safety Report 17570364 (Version 3)
Quarter: 2021Q2

REPORT INFORMATION
  Report Type: Spontaneous
  Country: US (occurrence: US)
  Receive Date: 20200323
  Receipt Date: 20210518
  Transmission Date: 20210716
  Serious: Yes (Hospitalization, Other)
  Sender: FDA-Public Use
  Company Number: US-GILEAD-2020-0455829

PATIENT
  Age: 46 Year
  Sex: Female
  Weight: 74.83 kg

DRUGS (62)
  1. IPRATROPIUM BROMIDE. [Concomitant]
     Active Substance: IPRATROPIUM BROMIDE
  2. CEFDINIR. [Concomitant]
     Active Substance: CEFDINIR
  3. CHLORASEPTIC SORE THROAT [Concomitant]
     Active Substance: PHENOL
  4. DIAZEPAM. [Concomitant]
     Active Substance: DIAZEPAM
  5. KLOR?CON [Concomitant]
     Active Substance: POTASSIUM CHLORIDE
  6. LIDOCAINE. [Concomitant]
     Active Substance: LIDOCAINE
  7. FORTEO [Concomitant]
     Active Substance: TERIPARATIDE
  8. ATROVENT [Concomitant]
     Active Substance: IPRATROPIUM BROMIDE
  9. AZITHROMYCIN ANHYDROUS. [Concomitant]
     Active Substance: AZITHROMYCIN ANHYDROUS
  10. FLUTICASONE. [Concomitant]
     Active Substance: FLUTICASONE
  11. NICOTINE. [Concomitant]
     Active Substance: NICOTINE
  12. PAXIL [Concomitant]
     Active Substance: PAROXETINE HYDROCHLORIDE
  13. PROMETHAZINE [Concomitant]
     Active Substance: PROMETHAZINE HYDROCHLORIDE
  14. ZOFRAN [Concomitant]
     Active Substance: ONDANSETRON HYDROCHLORIDE
  15. VIREAD [Suspect]
     Active Substance: TENOFOVIR DISOPROXIL FUMARATE
     Indication: HEPATITIS B
     Dosage: UNK
     Route: 048
     Dates: start: 2012
  16. CEPHALEXIN AMEL [Concomitant]
     Active Substance: CEPHALEXIN
  17. TORADOL [Concomitant]
     Active Substance: KETOROLAC TROMETHAMINE
  18. VIREAD [Suspect]
     Active Substance: TENOFOVIR DISOPROXIL FUMARATE
     Dosage: UNK
     Route: 048
     Dates: start: 200909, end: 20171124
  19. TYMLOS [Concomitant]
     Active Substance: ABALOPARATIDE
  20. CIPROFLOXACIN. [Concomitant]
     Active Substance: CIPROFLOXACIN
  21. ACETAMINOPHEN. [Concomitant]
     Active Substance: ACETAMINOPHEN
  22. HEPSERA [Concomitant]
     Active Substance: ADEFOVIR DIPIVOXIL
  23. MULTIVITAMIN + MINERAL [Concomitant]
     Active Substance: MINERALS\VITAMINS
  24. PROTONIX [Concomitant]
     Active Substance: PANTOPRAZOLE SODIUM
  25. VITAMIN D 2000 [Concomitant]
     Active Substance: VITAMIN D NOS
  26. ZANTAC [Concomitant]
     Active Substance: RANITIDINE HYDROCHLORIDE
  27. FLOMAX [Concomitant]
     Active Substance: TAMSULOSIN HYDROCHLORIDE
  28. ALENDRONATE SODIUM. [Concomitant]
     Active Substance: ALENDRONATE SODIUM
  29. ENOXAPARIN [Concomitant]
     Active Substance: ENOXAPARIN
  30. MELATONIN [Concomitant]
     Active Substance: MELATONIN
  31. NITROFURANTOIN MONOHYDRATE MACROCRYSTALS [Concomitant]
     Active Substance: NITROFURANTOIN\NITROFURANTOIN MONOHYDRATE
  32. TOPROL XL [Concomitant]
     Active Substance: METOPROLOL SUCCINATE
  33. METOPROLOL. [Concomitant]
     Active Substance: METOPROLOL
  34. POLYETHYLENE GLYCOL 3350. [Concomitant]
     Active Substance: POLYETHYLENE GLYCOL 3350
  35. CHOLECALCIFEROL [Concomitant]
     Active Substance: CHOLECALCIFEROL
  36. CLINDAMYCIN. [Concomitant]
     Active Substance: CLINDAMYCIN
  37. ECOTRIN [Concomitant]
     Active Substance: ASPIRIN
  38. GABAPENTIN. [Concomitant]
     Active Substance: GABAPENTIN
  39. HYDROCODONE [Concomitant]
     Active Substance: HYDROCODONE
  40. LOVENOX HP [Concomitant]
     Active Substance: ENOXAPARIN SODIUM
  41. METHOCARBAMOL. [Concomitant]
     Active Substance: METHOCARBAMOL
  42. TIZANIDINE. [Concomitant]
     Active Substance: TIZANIDINE
  43. PROTONIX [Concomitant]
     Active Substance: PANTOPRAZOLE SODIUM
  44. ASPIRIN (E.C.) [Concomitant]
     Active Substance: ASPIRIN
  45. PROTONIX [Concomitant]
     Active Substance: PANTOPRAZOLE SODIUM
  46. ENDOCET [Concomitant]
     Active Substance: ACETAMINOPHEN\OXYCODONE HYDROCHLORIDE
  47. LACTULOSE. [Concomitant]
     Active Substance: LACTULOSE
  48. SENOKOT [Concomitant]
     Active Substance: SENNOSIDES
  49. POTASSIUM CITRATE ? CITRIC ACID CRYSTALS [Concomitant]
  50. AMOXICILLIN. [Concomitant]
     Active Substance: AMOXICILLIN
  51. DICYCLOMINE CO [Concomitant]
  52. ENTECAVIR. [Concomitant]
     Active Substance: ENTECAVIR
  53. FLEXERIL [Concomitant]
     Active Substance: CYCLOBENZAPRINE HYDROCHLORIDE
  54. HYOSCYAMINE SULFATE. [Concomitant]
     Active Substance: HYOSCYAMINE SULFATE
  55. IBUPROFEN. [Concomitant]
     Active Substance: IBUPROFEN
  56. K?PHOS NEUTRAL [Concomitant]
     Active Substance: POTASSIUM PHOSPHATE\SODIUM PHOSPHATE
  57. MACROBID [CLARITHROMYCIN] [Concomitant]
     Active Substance: CLARITHROMYCIN
  58. PREMARIN [Concomitant]
     Active Substance: ESTROGENS, CONJUGATED
  59. PROTONIX [Concomitant]
     Active Substance: PANTOPRAZOLE SODIUM
  60. TRAMADOL. [Concomitant]
     Active Substance: TRAMADOL
  61. XIFAXAN [Concomitant]
     Active Substance: RIFAXIMIN
  62. ZOLPIDEM [Concomitant]
     Active Substance: ZOLPIDEM TARTRATE

REACTIONS (19)
  - Decreased activity [Not Recovered/Not Resolved]
  - Weight decreased [Unknown]
  - Pelvic fracture [Unknown]
  - Hip fracture [Not Recovered/Not Resolved]
  - Nephrolithiasis [Unknown]
  - Upper limb fracture [Not Recovered/Not Resolved]
  - Anhedonia [Not Recovered/Not Resolved]
  - Depression [Not Recovered/Not Resolved]
  - Emotional distress [Not Recovered/Not Resolved]
  - Life expectancy shortened [Not Recovered/Not Resolved]
  - Mobility decreased [Not Recovered/Not Resolved]
  - Anxiety [Not Recovered/Not Resolved]
  - Chronic kidney disease [Not Recovered/Not Resolved]
  - Osteoporosis [Not Recovered/Not Resolved]
  - Bone density decreased [Unknown]
  - Economic problem [Not Recovered/Not Resolved]
  - Pain [Not Recovered/Not Resolved]
  - Femur fracture [Not Recovered/Not Resolved]
  - Ulcer haemorrhage [Unknown]

NARRATIVE: CASE EVENT DATE: 20161005
